FAERS Safety Report 5987479-9 (Version None)
Quarter: 2008Q4

REPORT INFORMATION
  Report Type: 
  Country: None (occurrence: None)
  Receive Date: 20081209
  Receipt Date: 20081204
  Transmission Date: 20090506
  Serious: Yes (Other)
  Sender: FDA-Public Use
  Company Number: US-ASTRAZENECA-2008UW27109

PATIENT
  Age: 33 Year
  Sex: Female

DRUGS (3)
  1. SEROQUEL [Suspect]
     Route: 048
  2. MUCINEX [Suspect]
  3. CYMBALTA [Concomitant]

REACTIONS (1)
  - LOSS OF CONSCIOUSNESS [None]
